FAERS Safety Report 12957140 (Version 1)
Quarter: 2016Q4

REPORT INFORMATION
  Report Type: Report from Study
  Country: US (occurrence: US)
  Receive Date: 20161118
  Receipt Date: 20161118
  Transmission Date: 20170207
  Serious: Yes (Death, Other)
  Sender: FDA-Public Use
  Company Number: US-009507513-1611USA008228

PATIENT
  Age: 92 Year
  Sex: Male
  Weight: 53.2 kg

DRUGS (2)
  1. CARFILZOMIB [Suspect]
     Active Substance: CARFILZOMIB
     Indication: PLASMA CELL MYELOMA
     Dosage: 27 MG/M2, DAY 1, 2, 8, 9, 15, 16 EVERY 28 DAYS (CYCLICAL)
     Route: 042
     Dates: start: 20150828
  2. DECADRON [Suspect]
     Active Substance: DEXAMETHASONE
     Indication: PLASMA CELL MYELOMA
     Dosage: 20 MG, DAY 1, 8, 15 EVERY 28 DAYS (CYCLICAL)
     Route: 042
     Dates: start: 20150828

REACTIONS (1)
  - Death [Fatal]

NARRATIVE: CASE EVENT DATE: 20160118
